FAERS Safety Report 9530702 (Version 1)
Quarter: 2013Q3

REPORT INFORMATION
  Report Type: Spontaneous
  Country: US (occurrence: None)
  Receive Date: 20130916
  Receipt Date: 20130916
  Transmission Date: 20140515
  Serious: No
  Sender: FDA-Public Use
  Company Number: None

PATIENT
  Sex: Female
  Weight: 138 kg

DRUGS (2)
  1. METFORMIN [Suspect]
     Indication: POLYCYSTIC OVARIES
     Dates: start: 2012, end: 2013
  2. METFORMIN [Suspect]
     Indication: OBESITY
     Dates: start: 2012, end: 2013

REACTIONS (2)
  - Nausea [None]
  - Dizziness [None]
